FAERS Safety Report 14207487 (Version 3)
Quarter: 2018Q4

REPORT INFORMATION
  Report Type: Spontaneous
  Country: US (occurrence: US)
  Receive Date: 20171121
  Receipt Date: 20181120
  Transmission Date: 20190204
  Serious: No
  Sender: FDA-Public Use
  Company Number: US-JNJFOC-20171012803

PATIENT
  Sex: Female

DRUGS (8)
  1. OCUVITE [Concomitant]
     Active Substance: VITAMINS
  2. ACYCLOVIR. [Concomitant]
     Active Substance: ACYCLOVIR
  3. NEXIUM [Concomitant]
     Active Substance: ESOMEPRAZOLE MAGNESIUM
  4. CALCIUM [Concomitant]
     Active Substance: CALCIUM
  5. ALLEGRA-D [Concomitant]
     Active Substance: FEXOFENADINE\PSEUDOEPHEDRINE
  6. IMBRUVICA [Suspect]
     Active Substance: IBRUTINIB
     Indication: CHRONIC LYMPHOCYTIC LEUKAEMIA
     Route: 048
     Dates: start: 20170317
  7. ALPRAZOLAM. [Concomitant]
     Active Substance: ALPRAZOLAM
  8. CRANBERRY. [Concomitant]
     Active Substance: CRANBERRY

REACTIONS (3)
  - Product packaging quantity issue [Unknown]
  - Alopecia [Unknown]
  - Nail disorder [Unknown]
